FAERS Safety Report 9166425 (Version 1)
Quarter: 2013Q1

REPORT INFORMATION
  Report Type: Spontaneous
  Country: US (occurrence: US)
  Receive Date: 20130315
  Receipt Date: 20130315
  Transmission Date: 20140127
  Serious: No
  Sender: FDA-Public Use
  Company Number: US-009507513-1303USA006717

PATIENT
  Sex: Male

DRUGS (3)
  1. RIBAVIRIN [Suspect]
     Indication: CHRONIC HEPATITIS C
     Dosage: 1200 MG, QD
     Dates: start: 20110916
  2. BOCEPREVIR [Suspect]
     Indication: CHRONIC HEPATITIS C
     Dosage: 800 MG, TID
     Dates: start: 20110916
  3. PEGINTERFERON ALFA-2A [Suspect]
     Indication: CHRONIC HEPATITIS C
     Dosage: 180 MICROGRAM, QW
     Route: 058
     Dates: start: 20110916

REACTIONS (7)
  - Fatigue [Unknown]
  - Insomnia [Unknown]
  - Myalgia [Unknown]
  - White blood cell count decreased [Unknown]
  - Muscle spasms [Unknown]
  - Fatigue [Unknown]
  - Weight decreased [Unknown]
